FAERS Safety Report 5583530-9 (Version None)
Quarter: 2008Q1

REPORT INFORMATION
  Report Type: 
  Country: None (occurrence: None)
  Receive Date: 20080107
  Receipt Date: 20071212
  Transmission Date: 20080703
  Serious: No
  Sender: FDA-Public Use
  Company Number: US-BOEHRINGER INGELHEIM PHARMACEUTICALS, INC.-2007-BP-25263BP

PATIENT
  Age: 86 Year
  Sex: Female

DRUGS (2)
  1. SPIRIVA [Suspect]
     Indication: CHRONIC OBSTRUCTIVE PULMONARY DISEASE
     Route: 055
  2. CELEXA [Concomitant]

REACTIONS (3)
  - DYSPNOEA [None]
  - PAIN IN EXTREMITY [None]
  - VISUAL DISTURBANCE [None]
